FAERS Safety Report 7792307-5 (Version None)
Quarter: 2011Q4

REPORT INFORMATION
  Report Type: 
  Country: None (occurrence: None)
  Receive Date: 20111003
  Receipt Date: 20110919
  Transmission Date: 20120403
  Serious: Yes (Hospitalization, Other)
  Sender: FDA-Public Use
  Company Number: PHEH2011US04494

PATIENT
  Sex: Female
  Weight: 89.811 kg

DRUGS (5)
  1. ACTOS [Concomitant]
     Dosage: 1 DF, QD
     Dates: end: 20110301
  2. STARLIX [Suspect]
     Indication: DIABETES MELLITUS
  3. GLIMEPIRIDE [Concomitant]
     Indication: DIABETES MELLITUS
  4. JANUVIA [Concomitant]
  5. METFORMIN HCL [Concomitant]

REACTIONS (4)
  - RENAL INJURY [None]
  - BLOOD GLUCOSE INCREASED [None]
  - DIABETES MELLITUS INADEQUATE CONTROL [None]
  - OEDEMA PERIPHERAL [None]
